FAERS Safety Report 11072985 (Version 1)
Quarter: 2015Q2

REPORT INFORMATION
  Report Type: Spontaneous
  Country: RU (occurrence: RU)
  Receive Date: 20150428
  Receipt Date: 20150428
  Transmission Date: 20150821
  Serious: Yes (Other)
  Sender: FDA-Public Use
  Company Number: RU-TEVA-556114ISR

PATIENT
  Sex: Female

DRUGS (2)
  1. DOXORUBICIN-TEVA [Suspect]
     Active Substance: DOXORUBICIN
     Route: 064
  2. VINCRISTINE-TEVA [Suspect]
     Active Substance: VINCRISTINE
     Route: 064

REACTIONS (3)
  - Neonatal respiratory distress syndrome [Unknown]
  - Pneumonia [Unknown]
  - Foetal exposure during pregnancy [Unknown]
